FAERS Safety Report 12619937 (Version 1)
Quarter: 2016Q3

REPORT INFORMATION
  Report Type: Spontaneous
  Country: US (occurrence: US)
  Receive Date: 20160803
  Receipt Date: 20160803
  Transmission Date: 20161109
  Serious: No
  Sender: FDA-Public Use
  Company Number: US-ENDO PHARMACEUTICALS INC.-2015-002433

PATIENT
  Age: 47 Year
  Sex: Male
  Weight: 108.96 kg

DRUGS (1)
  1. TESTOPEL [Suspect]
     Active Substance: TESTOSTERONE
     Indication: BLOOD TESTOSTERONE DECREASED
     Route: 058
     Dates: start: 20150806, end: 20150806

REACTIONS (4)
  - Implant site haemorrhage [Recovering/Resolving]
  - Contusion [Recovering/Resolving]
  - Implant site pain [Not Recovered/Not Resolved]
  - Implant site swelling [Recovering/Resolving]

NARRATIVE: CASE EVENT DATE: 20150806
